FAERS Safety Report 5199827-0 (Version None)
Quarter: 2006Q4

REPORT INFORMATION
  Report Type: 
  Country: None (occurrence: None)
  Receive Date: 20061229
  Receipt Date: 20061213
  Transmission Date: 20070319
  Serious: Yes (Life-Threatening, Hospitalization)
  Sender: FDA-Public Use
  Company Number: DSA_29134_2006

PATIENT
  Age: 39 Year
  Sex: Female

DRUGS (4)
  1. TAVOR     /00273201) [Suspect]
     Dosage: DF ONCE PO
     Route: 048
     Dates: start: 20061212, end: 20061212
  2. PAROXETINE HCL [Suspect]
     Dosage: DF ONCE PO
     Route: 048
     Dates: start: 20061212, end: 20061212
  3. VALPROIC ACID [Suspect]
     Dosage: DF ONCE PO
     Route: 048
     Dates: start: 20061212, end: 20061212
  4. ALCOHOL [Suspect]
     Dates: start: 20061212, end: 20061212

REACTIONS (6)
  - DEPRESSED LEVEL OF CONSCIOUSNESS [None]
  - EYELID OEDEMA [None]
  - MIOSIS [None]
  - MULTIPLE DRUG OVERDOSE [None]
  - MYDRIASIS [None]
  - SUICIDE ATTEMPT [None]
